FAERS Safety Report 7368527-0 (Version None)
Quarter: 2011Q1

REPORT INFORMATION
  Report Type: 
  Country: None (occurrence: None)
  Receive Date: 20110311
  Receipt Date: 20110311
  Transmission Date: 20110831
  Serious: Yes (Other)
  Sender: FDA-Public Use
  Company Number: None

PATIENT
  Sex: Female
  Weight: 51.2565 kg

DRUGS (2)
  1. BONIVA [Suspect]
     Indication: OSTEOPOROSIS
     Dosage: 3MG/3ML Q3MONTHS IV
     Route: 042
     Dates: start: 20101027
  2. BONIVA [Suspect]
     Indication: OSTEOPOROSIS
     Dosage: 3MG/3ML Q3MONTHS IV
     Route: 042
     Dates: start: 20110221

REACTIONS (4)
  - SWELLING [None]
  - MYALGIA [None]
  - ARTHRALGIA [None]
  - JOINT SWELLING [None]
